FAERS Safety Report 6471600-2 (Version None)
Quarter: 2009Q4

REPORT INFORMATION
  Report Type: 
  Country: None (occurrence: None)
  Receive Date: 20091203
  Receipt Date: 20080428
  Transmission Date: 20100525
  Serious: Yes (Hospitalization)
  Sender: FDA-Public Use
  Company Number: US-ELI_LILLY_AND_COMPANY-US200803005885

PATIENT
  Sex: Female

DRUGS (13)
  1. BYETTA [Suspect]
     Indication: TYPE 2 DIABETES MELLITUS
     Dosage: 5 UG, 2/D
     Route: 058
     Dates: start: 20060501, end: 20060701
  2. BYETTA [Suspect]
     Dosage: 10 UG, 2/D
     Route: 058
     Dates: start: 20060701
  3. INSULIN [Concomitant]
     Indication: DIABETES MELLITUS
     Dosage: UNK, UNKNOWN
     Route: 058
  4. MOBIC [Concomitant]
     Indication: ARTHRITIS
     Route: 048
  5. COUMADIN [Concomitant]
  6. ALLEGRA [Concomitant]
     Indication: HYPERSENSITIVITY
  7. FLEXERIL [Concomitant]
  8. AMBIEN [Concomitant]
     Indication: INSOMNIA
  9. HYDROCODONE [Concomitant]
  10. FLONASE [Concomitant]
     Indication: HYPERSENSITIVITY
  11. TYLENOL ARTHRITIS FORMULA [Concomitant]
     Indication: ARTHRITIS
     Dosage: UNK, EACH EVENING
     Route: 048
  12. NEURONTIN [Concomitant]
     Indication: NEUROPATHY PERIPHERAL
     Dates: end: 20080101
  13. LYRICA [Concomitant]
     Indication: NEUROPATHY PERIPHERAL
     Route: 048
     Dates: start: 20080101

REACTIONS (7)
  - BLOOD GLUCOSE DECREASED [None]
  - BLOOD GLUCOSE INCREASED [None]
  - INFECTED SKIN ULCER [None]
  - INJECTION SITE ABSCESS [None]
  - POLLAKIURIA [None]
  - SEPSIS [None]
  - SKIN DISORDER [None]
